FAERS Safety Report 10724893 (Version 1)
Quarter: 2015Q1

REPORT INFORMATION
  Report Type: Spontaneous
  Country: DE (occurrence: DE)
  Receive Date: 20150120
  Receipt Date: 20150120
  Transmission Date: 20150721
  Serious: Yes (Other)
  Sender: FDA-Public Use
  Company Number: CHPA2015DE000852

PATIENT
  Sex: Female

DRUGS (1)
  1. OTRIVEN SINUSPRAY [Suspect]
     Active Substance: XYLOMETAZOLINE HYDROCHLORIDE
     Indication: RHINITIS
     Dosage: AT LEAST 2 SPRAY PUFFS; QD
     Route: 045

REACTIONS (2)
  - Ageusia [Not Recovered/Not Resolved]
  - Incorrect drug administration duration [Unknown]
